FAERS Safety Report 5563782-1 (Version None)
Quarter: 2007Q4

REPORT INFORMATION
  Report Type: 
  Country: None (occurrence: None)
  Receive Date: 20071217
  Receipt Date: 20070801
  Transmission Date: 20080405
  Serious: No
  Sender: FDA-Public Use
  Company Number: US-ASTRAZENECA-2007UW18481

PATIENT
  Age: 49 Year
  Sex: Female
  Weight: 60.3 kg

DRUGS (4)
  1. CRESTOR [Suspect]
     Indication: BLOOD CHOLESTEROL INCREASED
     Route: 048
     Dates: start: 20060101
  2. CRESTOR [Suspect]
     Route: 048
  3. ACIPHEX [Concomitant]
  4. MULTI-VITAMIN [Concomitant]

REACTIONS (3)
  - HYPOAESTHESIA [None]
  - NAUSEA [None]
  - PARAESTHESIA [None]
